FAERS Safety Report 17455576 (Version 17)
Quarter: 2021Q2

REPORT INFORMATION
  Report Type: Spontaneous
  Country: CA (occurrence: CA)
  Receive Date: 20200225
  Receipt Date: 20210419
  Transmission Date: 20210716
  Serious: Yes (Other)
  Sender: FDA-Public Use
  Company Number: CA-CELLTRION INC.-2017CA013005

PATIENT

DRUGS (59)
  1. INFLECTRA [Suspect]
     Active Substance: INFLIXIMAB-DYYB
     Dosage: 200 MG, 0,2,6 WEEKS THEN EVERY 8 WEEKS (INDUCTION WEEK 2)
     Route: 042
     Dates: start: 20171204, end: 20171204
  2. INFLECTRA [Suspect]
     Active Substance: INFLIXIMAB-DYYB
     Dosage: 200 MG, 0,2,6 WEEKS THEN EVERY 8 WEEKS
     Route: 042
     Dates: start: 20180226, end: 20180226
  3. INFLECTRA [Suspect]
     Active Substance: INFLIXIMAB-DYYB
     Dosage: 385 MG, EVERY 6 WEEKS
     Route: 042
     Dates: start: 20191230
  4. INFLECTRA [Suspect]
     Active Substance: INFLIXIMAB-DYYB
     Dosage: 385 MG, EVERY 6 WEEKS
     Route: 042
     Dates: start: 20200807
  5. INFLECTRA [Suspect]
     Active Substance: INFLIXIMAB-DYYB
     Dosage: 385 MG, EVERY 6 WEEKS
     Route: 042
     Dates: start: 20210409
  6. ADALAT CC [Concomitant]
     Active Substance: NIFEDIPINE
     Dosage: 120 MG, 1X/DAY
     Route: 048
     Dates: start: 2016
  7. DIPHENHYDRAMINE. [Concomitant]
     Active Substance: DIPHENHYDRAMINE
     Indication: PREMEDICATION
     Dosage: 25 MG
     Route: 048
     Dates: start: 20180813
  8. INFLECTRA [Suspect]
     Active Substance: INFLIXIMAB-DYYB
     Indication: TAKAYASU^S ARTERITIS
     Dosage: 200 MG, 0,2,6 WEEKS THEN EVERY 8 WEEKS
     Route: 042
     Dates: start: 20171120
  9. INFLECTRA [Suspect]
     Active Substance: INFLIXIMAB-DYYB
     Dosage: 200 MG, 0, 2, 6, THEN EVERY 8 WEEKS
     Route: 042
     Dates: start: 20180627
  10. INFLECTRA [Suspect]
     Active Substance: INFLIXIMAB-DYYB
     Dosage: 385 MG, EVERY 6 WEEKS
     Route: 042
     Dates: start: 20190429
  11. INFLECTRA [Suspect]
     Active Substance: INFLIXIMAB-DYYB
     Dosage: 385 MG, EVERY 6 WEEKS
     Route: 042
     Dates: start: 20190826
  12. INFLECTRA [Suspect]
     Active Substance: INFLIXIMAB-DYYB
     Dosage: 385 MG, EVERY 6 WEEKS
     Route: 042
     Dates: start: 20200210
  13. ACETAMINOPHEN. [Concomitant]
     Active Substance: ACETAMINOPHEN
     Indication: PREMEDICATION
     Dosage: 650 MG, UNK
     Route: 048
     Dates: start: 20180813
  14. ASA [Concomitant]
     Active Substance: ASPIRIN
     Dosage: 81 MG, 1X/DAY
     Route: 048
     Dates: start: 2009
  15. LABETALOL [Concomitant]
     Active Substance: LABETALOL\LABETALOL HYDROCHLORIDE
     Dosage: 20 MG, 2X/DAY
     Route: 048
     Dates: start: 2016
  16. METHOTREXATE. [Concomitant]
     Active Substance: METHOTREXATE
     Dosage: 25 MG, WEEKLY
     Route: 058
     Dates: start: 201705
  17. PANTOPRAZOLE [Concomitant]
     Active Substance: PANTOPRAZOLE
     Dosage: 40 MG, 2X/DAY
     Route: 048
     Dates: start: 201706
  18. INFLECTRA [Suspect]
     Active Substance: INFLIXIMAB-DYYB
     Dosage: 200 MG, 0, 2, 6, THEN EVERY 8 WEEKS
     Route: 042
     Dates: start: 20180627
  19. INFLECTRA [Suspect]
     Active Substance: INFLIXIMAB-DYYB
     Dosage: 385 MG, EVERY 6 WEEKS
     Route: 042
     Dates: start: 20181107
  20. INFLECTRA [Suspect]
     Active Substance: INFLIXIMAB-DYYB
     Dosage: 385 MG, EVERY 6 WEEKS
     Route: 042
     Dates: start: 20190130
  21. INFLECTRA [Suspect]
     Active Substance: INFLIXIMAB-DYYB
     Dosage: 385 MG, EVERY 6 WEEKS
     Route: 042
     Dates: start: 20210409
  22. ACETAMINOPHEN. [Concomitant]
     Active Substance: ACETAMINOPHEN
     Dosage: 650 MG
     Route: 048
     Dates: start: 20190318, end: 20190318
  23. DIMENHYDRINATE. [Concomitant]
     Active Substance: DIMENHYDRINATE
     Indication: PREMEDICATION
     Dosage: 50 MG
     Route: 048
  24. INDAPAMIDE. [Concomitant]
     Active Substance: INDAPAMIDE
     Dosage: 2500 UG, 1X/DAY
     Route: 048
     Dates: start: 201707
  25. METHOTREXATE. [Concomitant]
     Active Substance: METHOTREXATE
     Dosage: 1 DF, WEEKLY
     Route: 058
     Dates: start: 2009, end: 2009
  26. METHOTREXATE. [Concomitant]
     Active Substance: METHOTREXATE
     Dosage: 1 DF, WEEKLY
     Route: 058
     Dates: start: 2009
  27. INFLECTRA [Suspect]
     Active Substance: INFLIXIMAB-DYYB
     Dosage: 200 MG, 0, 2, 6, THEN EVERY 8 WEEKS
     Route: 042
     Dates: start: 20180423
  28. INFLECTRA [Suspect]
     Active Substance: INFLIXIMAB-DYYB
     Dosage: 385 MG, EVERY 6 WEEKS
     Route: 042
     Dates: start: 20180924
  29. INFLECTRA [Suspect]
     Active Substance: INFLIXIMAB-DYYB
     Dosage: 385 MG, EVERY 6 WEEKS
     Route: 042
     Dates: start: 20190318
  30. INFLECTRA [Suspect]
     Active Substance: INFLIXIMAB-DYYB
     Dosage: 385 MG, EVERY 6 WEEKS
     Route: 042
     Dates: start: 20200326
  31. ACETAMINOPHEN. [Concomitant]
     Active Substance: ACETAMINOPHEN
     Dosage: 650 MG
     Route: 048
     Dates: start: 20190429
  32. INFLECTRA [Suspect]
     Active Substance: INFLIXIMAB-DYYB
     Dosage: 200 MG, 0,2,6 WEEKS THEN EVERY 8 WEEKS (INDUCTION WEEK 6)
     Route: 042
     Dates: start: 20180102, end: 20180102
  33. INFLECTRA [Suspect]
     Active Substance: INFLIXIMAB-DYYB
     Dosage: 385 MG, EVERY 6 WEEKS
     Route: 042
     Dates: start: 20200506
  34. INFLECTRA [Suspect]
     Active Substance: INFLIXIMAB-DYYB
     Dosage: 385 MG, EVERY 6 WEEKS
     Route: 042
     Dates: start: 20200925
  35. ASA [Concomitant]
     Active Substance: ASPIRIN
     Dosage: 81 MG, 1X/DAY
     Route: 048
     Dates: start: 2009
  36. ASA [Concomitant]
     Active Substance: ASPIRIN
     Dosage: 81 MG, 1X/DAY
     Route: 048
     Dates: start: 2009
  37. PANTOPRAZOLE [Concomitant]
     Active Substance: PANTOPRAZOLE
     Dosage: 40 MG, 2X/DAY
     Route: 048
     Dates: start: 2016
  38. INFLECTRA [Suspect]
     Active Substance: INFLIXIMAB-DYYB
     Dosage: 385 MG, EVERY 6 WEEKS
     Route: 042
     Dates: start: 20180924
  39. INFLECTRA [Suspect]
     Active Substance: INFLIXIMAB-DYYB
     Dosage: 385 MG, EVERY 6 WEEKS
     Route: 042
     Dates: start: 20190722
  40. INFLECTRA [Suspect]
     Active Substance: INFLIXIMAB-DYYB
     Dosage: 385 MG, EVERY 6 WEEKS
     Route: 042
     Dates: start: 20191230
  41. INFLECTRA [Suspect]
     Active Substance: INFLIXIMAB-DYYB
     Dosage: 385 MG, EVERY 6 WEEKS
     Route: 042
     Dates: start: 20200626
  42. ACETAMINOPHEN. [Concomitant]
     Active Substance: ACETAMINOPHEN
     Dosage: 625 MG
     Route: 048
  43. INFLECTRA [Suspect]
     Active Substance: INFLIXIMAB-DYYB
     Dosage: 200 MG, 0, 2, 6, THEN EVERY 8 WEEKS
     Route: 042
     Dates: start: 20180813, end: 20180813
  44. INFLECTRA [Suspect]
     Active Substance: INFLIXIMAB-DYYB
     Dosage: 385 MG, EVERY 6 WEEKS
     Route: 042
     Dates: start: 20171120
  45. INFLECTRA [Suspect]
     Active Substance: INFLIXIMAB-DYYB
     Dosage: 385 MG, EVERY 6 WEEKS
     Route: 042
     Dates: start: 20190429
  46. INFLECTRA [Suspect]
     Active Substance: INFLIXIMAB-DYYB
     Dosage: 385 MG, EVERY 6 WEEKS
     Route: 042
     Dates: start: 20190610
  47. INFLECTRA [Suspect]
     Active Substance: INFLIXIMAB-DYYB
     Dosage: 385 MG, EVERY 6 WEEKS
     Route: 042
     Dates: start: 20191122
  48. INFLECTRA [Suspect]
     Active Substance: INFLIXIMAB-DYYB
     Dosage: 385 MG, EVERY 6 WEEKS
     Route: 042
     Dates: start: 20191122
  49. INFLECTRA [Suspect]
     Active Substance: INFLIXIMAB-DYYB
     Dosage: 385 MG, EVERY 6 WEEKS
     Route: 042
     Dates: start: 20200506
  50. INFLECTRA [Suspect]
     Active Substance: INFLIXIMAB-DYYB
     Dosage: 385 MG, EVERY 6 WEEKS
     Route: 042
     Dates: start: 20201030
  51. DIPHENHYDRAMINE. [Concomitant]
     Active Substance: DIPHENHYDRAMINE
     Dosage: 50 MG
     Route: 048
  52. INDAPAMIDE. [Concomitant]
     Active Substance: INDAPAMIDE
     Dosage: 2.5 MG, 1X/DAY
     Route: 048
     Dates: start: 201707
  53. INDAPAMIDE. [Concomitant]
     Active Substance: INDAPAMIDE
     Dosage: 2 MG, 1X/DAY (DOSE 2.5 MG, CAPTURED 2 MG DUE TO DATABASE RESTRICTIONS)
     Route: 048
     Dates: start: 201707
  54. INDAPAMIDE. [Concomitant]
     Active Substance: INDAPAMIDE
     Dosage: 2500 UG, 1X/DAY
     Route: 048
     Dates: start: 201707
  55. INFLECTRA [Suspect]
     Active Substance: INFLIXIMAB-DYYB
     Dosage: 385 MG, EVERY 6 WEEKS
     Route: 042
     Dates: start: 20181218
  56. INFLECTRA [Suspect]
     Active Substance: INFLIXIMAB-DYYB
     Dosage: 385 MG, EVERY 6 WEEKS
     Route: 042
     Dates: start: 20190130
  57. INFLECTRA [Suspect]
     Active Substance: INFLIXIMAB-DYYB
     Dosage: 385 MG, EVERY 6 WEEKS
     Route: 042
     Dates: start: 20190318
  58. ACETAMINOPHEN. [Concomitant]
     Active Substance: ACETAMINOPHEN
     Dosage: 1000 MG
     Route: 048
     Dates: start: 20190610, end: 20190610
  59. METHOTREXATE. [Concomitant]
     Active Substance: METHOTREXATE
     Dosage: 25 MG, WEEKLY
     Route: 058
     Dates: start: 2009, end: 2013

REACTIONS (20)
  - Carotid artery stenosis [Unknown]
  - Joint swelling [Not Recovered/Not Resolved]
  - Muscular weakness [Unknown]
  - Grip strength decreased [Unknown]
  - Intentional product use issue [Unknown]
  - Gait disturbance [Unknown]
  - Off label use [Unknown]
  - Inappropriate schedule of product administration [Unknown]
  - Weight increased [Unknown]
  - Hypertension [Unknown]
  - Headache [Unknown]
  - Arthralgia [Not Recovered/Not Resolved]
  - Myalgia [Not Recovered/Not Resolved]
  - Nasopharyngitis [Recovering/Resolving]
  - Dysphagia [Not Recovered/Not Resolved]
  - Blood pressure fluctuation [Not Recovered/Not Resolved]
  - Pharyngitis streptococcal [Recovering/Resolving]
  - Ear infection [Not Recovered/Not Resolved]
  - Peripheral swelling [Not Recovered/Not Resolved]
  - Condition aggravated [Unknown]

NARRATIVE: CASE EVENT DATE: 201711
